FAERS Safety Report 26149566 (Version 1)
Quarter: 2025Q4

REPORT INFORMATION
  Report Type: Report from Study
  Country: US (occurrence: US)
  Receive Date: 20251212
  Receipt Date: 20251212
  Transmission Date: 20260117
  Serious: Yes (Other)
  Sender: TAKEDA
  Company Number: US-TAKEDA-2025TUS111868

PATIENT
  Age: 32 Year
  Sex: Female

DRUGS (1)
  1. FRUQUINTINIB [Suspect]
     Active Substance: FRUQUINTINIB
     Indication: Rectosigmoid cancer
     Dosage: UNK

REACTIONS (3)
  - Neuropathy peripheral [Unknown]
  - Nausea [Unknown]
  - Diarrhoea [Unknown]
